FAERS Safety Report 23763673 (Version 1)
Quarter: 2024Q2

REPORT INFORMATION
  Report Type: Spontaneous
  Country: FR (occurrence: FR)
  Receive Date: 20240419
  Receipt Date: 20240419
  Transmission Date: 20240716
  Serious: Yes (Disabling)
  Sender: FDA-Public Use
  Company Number: FR-Merck Healthcare KGaA-2024004894

PATIENT
  Age: 64 Year
  Sex: Male
  Weight: 96 kg

DRUGS (1)
  1. METFORMIN PAMOATE [Suspect]
     Active Substance: METFORMIN PAMOATE
     Indication: Diabetes mellitus
     Dosage: 0-0-2
     Dates: start: 2016, end: 20240125

REACTIONS (12)
  - Gait inability [Recovering/Resolving]
  - Hereditary motor and sensory neuropathy [Recovering/Resolving]
  - Condition aggravated [Recovering/Resolving]
  - Asthenia [Unknown]
  - Insomnia [Unknown]
  - Viral infection [Unknown]
  - Fatigue [Unknown]
  - Monoclonal gammopathy [Unknown]
  - Glycosylated haemoglobin increased [Unknown]
  - Sinusitis [Unknown]
  - Oedema peripheral [Recovering/Resolving]
  - Urticaria [Recovered/Resolved]

NARRATIVE: CASE EVENT DATE: 20160101
